FAERS Safety Report 5219551-5 (Version None)
Quarter: 2007Q1

REPORT INFORMATION
  Report Type: 
  Country: None (occurrence: None)
  Receive Date: 20070124
  Receipt Date: 20070124
  Transmission Date: 20070707
  Serious: Yes (Death)
  Sender: FDA-Public Use
  Company Number: None

PATIENT
  Age: 83 Year
  Sex: Male
  Weight: 84.9 kg

DRUGS (17)
  1. VANCOMYCIN [Suspect]
     Indication: PNEUMONIA
     Dosage: 1000 MG DAILY IV
     Route: 042
  2. ACETAMINOPHEN [Concomitant]
  3. ALBUTEROL [Concomitant]
  4. CARBOXYMETHYLCELLULOSE [Concomitant]
  5. ROCEPHIN [Concomitant]
  6. DOCUSATE [Concomitant]
  7. HEPARIN [Concomitant]
  8. IPRATROPIUM BROMIDE [Concomitant]
  9. LIDOCAINE [Concomitant]
  10. MORPHINE [Concomitant]
  11. MOXIFLOXACIN HCL [Concomitant]
  12. OMEPRAZOLE [Concomitant]
  13. POLYVINYL ALCOHOL/SODIUM CHLORIDE [Concomitant]
  14. SENNA [Concomitant]
  15. TOLTERODINE [Concomitant]
  16. TRAZODONE HCL [Concomitant]
  17. VANCOMYCIN [Concomitant]

REACTIONS (1)
  - LINEAR IGA DISEASE [None]
